FAERS Safety Report 5964905-2 (Version None)
Quarter: 2008Q4

REPORT INFORMATION
  Report Type: 
  Country: None (occurrence: None)
  Receive Date: 20081121
  Receipt Date: 20081111
  Transmission Date: 20090506
  Serious: Yes (Other)
  Sender: FDA-Public Use
  Company Number: 2008AP003088

PATIENT
  Age: 45 Year
  Sex: Male

DRUGS (14)
  1. DIVALPROEX SODIUM DELAYED-RELEASE TABLETS [Suspect]
     Indication: AFFECTIVE DISORDER
     Dosage: 3000 MG;QD; : 2750 MG;QD; : 3000 MG;QD
  2. DIVALPROEX SODIUM DELAYED-RELEASE TABLETS [Suspect]
     Indication: CONVULSION
     Dosage: 3000 MG;QD; : 2750 MG;QD; : 3000 MG;QD
  3. OLANZAPINE [Concomitant]
  4. GEMFIBROZIL [Concomitant]
  5. ATORVASTATIN CALCIUM [Concomitant]
  6. PAROXETINE HCL [Concomitant]
  7. DESMOPRESSIN ACETATE [Concomitant]
  8. ENALAPRIL MALEATE [Concomitant]
  9. SELENIUM [Concomitant]
  10. ZINC GLUCONATE [Concomitant]
  11. HYDROXYZINE [Concomitant]
  12. LOXAPINE [Concomitant]
  13. DESMOPRESSIN ACETATE [Concomitant]
  14. TOPIRAMATE [Concomitant]

REACTIONS (5)
  - AGGRESSION [None]
  - ANTICONVULSANT DRUG LEVEL INCREASED [None]
  - MOOD SWINGS [None]
  - NEUTROPENIA [None]
  - TREMOR [None]
